FAERS Safety Report 9671799 (Version 1)
Quarter: 2013Q4

REPORT INFORMATION
  Report Type: Spontaneous
  Country: IT (occurrence: IT)
  Receive Date: 20131106
  Receipt Date: 20131106
  Transmission Date: 20140711
  Serious: Yes (Hospitalization)
  Sender: FDA-Public Use
  Company Number: IT-ABBVIE-13P-083-1166251-00

PATIENT
  Age: 61 Year
  Sex: Female

DRUGS (1)
  1. BIAXIN [Suspect]
     Indication: PNEUMONIA

REACTIONS (2)
  - Dermatomyositis [Recovered/Resolved]
  - Thrombocytopenia [Recovered/Resolved]
